FAERS Safety Report 14509759 (Version 1)
Quarter: 2018Q1

REPORT INFORMATION
  Report Type: Spontaneous
  Country: US (occurrence: US)
  Receive Date: 20180209
  Receipt Date: 20180209
  Transmission Date: 20180509
  Serious: No
  Sender: FDA-Public Use
  Company Number: US-PFIZER INC-2018056962

PATIENT
  Age: 45 Year
  Sex: Female
  Weight: 63.5 kg

DRUGS (2)
  1. VYVANSE [Concomitant]
     Active Substance: LISDEXAMFETAMINE DIMESYLATE
     Indication: ATTENTION DEFICIT/HYPERACTIVITY DISORDER
     Dosage: 40 MG, UNK
  2. PRISTIQ EXTENDED-RELEASE [Suspect]
     Active Substance: DESVENLAFAXINE SUCCINATE
     Indication: PREMENSTRUAL DYSPHORIC DISORDER
     Dosage: 50 MG, ONCE A DAY
     Route: 048
     Dates: start: 20171101

REACTIONS (8)
  - Bruxism [Recovered/Resolved]
  - Rhinalgia [Recovered/Resolved]
  - Sinus disorder [Unknown]
  - Migraine [Recovered/Resolved]
  - Dizziness [Unknown]
  - Skin disorder [Recovered/Resolved]
  - Withdrawal syndrome [Unknown]
  - Rash [Recovered/Resolved]
